FAERS Safety Report 18170829 (Version 1)
Quarter: 2020Q3

REPORT INFORMATION
  Report Type: Report from Study
  Country: CA (occurrence: CA)
  Receive Date: 20200819
  Receipt Date: 20200819
  Transmission Date: 20201103
  Serious: Yes (Other)
  Sender: FDA-Public Use
  Company Number: CA-HLS-202000897

PATIENT
  Age: 46 Year
  Sex: Female
  Weight: 73 kg

DRUGS (3)
  1. CLOZARIL [Suspect]
     Active Substance: CLOZAPINE
     Indication: REBOUND PSYCHOSIS
     Dosage: 100 MG
     Route: 048
     Dates: end: 202005
  2. CLOZARIL [Suspect]
     Active Substance: CLOZAPINE
     Indication: REBOUND PSYCHOSIS
     Route: 048
     Dates: end: 20200722
  3. EPIVAL [Concomitant]
     Active Substance: DIVALPROEX SODIUM
     Dosage: 750MG DAILY FOR MORE THAN 1 YEAR.
     Route: 065

REACTIONS (3)
  - Somnolence [Recovered/Resolved]
  - Treatment noncompliance [Unknown]
  - Feeling abnormal [Recovered/Resolved]

NARRATIVE: CASE EVENT DATE: 20200715
